FAERS Safety Report 6686740-2 (Version None)
Quarter: 2010Q2

REPORT INFORMATION
  Report Type: 
  Country: None (occurrence: None)
  Receive Date: 20100419
  Receipt Date: 20100412
  Transmission Date: 20101027
  Serious: Yes (Other)
  Sender: FDA-Public Use
  Company Number: JP-MERCK-1003USA04384

PATIENT
  Age: 65 Year
  Sex: Female

DRUGS (15)
  1. JANUVIA [Suspect]
     Indication: TYPE 2 DIABETES MELLITUS
     Route: 048
     Dates: start: 20100105, end: 20100121
  2. JANUVIA [Suspect]
     Route: 048
     Dates: start: 20100122, end: 20100218
  3. METHYCOOL [Concomitant]
     Route: 065
     Dates: start: 20100118
  4. METHYCOOL [Concomitant]
     Route: 065
     Dates: start: 20090716, end: 20091220
  5. METHYCOOL [Concomitant]
     Route: 065
     Dates: start: 20091221, end: 20100117
  6. LORAZEPAM [Concomitant]
     Route: 065
     Dates: start: 20091214, end: 20091220
  7. LORAZEPAM [Concomitant]
     Route: 065
     Dates: start: 20091224, end: 20100102
  8. LORAZEPAM [Concomitant]
     Route: 065
     Dates: start: 20100103
  9. RONFLEMAN [Concomitant]
     Route: 065
     Dates: start: 20060125, end: 20100208
  10. RONFLEMAN [Concomitant]
     Route: 065
     Dates: start: 20100209
  11. SEIBULE [Concomitant]
     Route: 065
     Dates: start: 20090715
  12. TOLEDOMIN [Concomitant]
     Route: 065
  13. ALOSENN [Concomitant]
     Route: 065
  14. TETRAMIDE [Concomitant]
     Route: 065
  15. SENNOSIDES [Concomitant]
     Route: 065

REACTIONS (3)
  - BLOOD GLUCOSE INCREASED [None]
  - LIPIDS INCREASED [None]
  - WEIGHT DECREASED [None]
